FAERS Safety Report 18461960 (Version 4)
Quarter: 2022Q1

REPORT INFORMATION
  Report Type: Report from Study
  Country: MX (occurrence: MX)
  Receive Date: 20201104
  Receipt Date: 20220115
  Transmission Date: 20220423
  Serious: Yes (Other)
  Sender: FDA-Public Use
  Company Number: NVSC2020MX295174

PATIENT
  Sex: Male
  Weight: 73 kg

DRUGS (6)
  1. TASIGNA [Suspect]
     Active Substance: NILOTINIB
     Indication: Chronic myeloid leukaemia
     Dosage: 400 MG, Q12H
     Route: 048
     Dates: start: 20181207
  2. TASIGNA [Suspect]
     Active Substance: NILOTINIB
     Dosage: 3 UNK, QD (2 MONTHS AGO)
     Route: 048
  3. TASIGNA [Suspect]
     Active Substance: NILOTINIB
     Dosage: UNK
     Route: 048
  4. PRAVASTATIN [Concomitant]
     Active Substance: PRAVASTATIN
     Indication: Product used for unknown indication
     Dosage: 1 DF, QD (3 YEARS AGO)
     Route: 048
  5. TAMSULOSIN [Concomitant]
     Active Substance: TAMSULOSIN
     Indication: Product used for unknown indication
     Dosage: 1 DF (AT NIGHT, 4 YEARS AGO)
     Route: 048
  6. FINASTERIDE [Concomitant]
     Active Substance: FINASTERIDE
     Indication: Product used for unknown indication
     Dosage: 1 DF (AT NIGHT, 4YEARS AGO)
     Route: 048

REACTIONS (17)
  - Cataract [Not Recovered/Not Resolved]
  - Glaucoma [Not Recovered/Not Resolved]
  - Diabetes mellitus [Unknown]
  - Renal failure [Unknown]
  - Platelet count decreased [Not Recovered/Not Resolved]
  - Product prescribing error [Unknown]
  - Insomnia [Unknown]
  - Rheumatic disorder [Unknown]
  - Cardiac disorder [Unknown]
  - Prostatic disorder [Unknown]
  - Pain in extremity [Unknown]
  - Discomfort [Unknown]
  - Pain [Unknown]
  - Dyspepsia [Unknown]
  - Taste disorder [Unknown]
  - Anosmia [Unknown]
  - Appetite disorder [Unknown]
